FAERS Safety Report 11802269 (Version 1)
Quarter: 2015Q4

REPORT INFORMATION
  Report Type: Spontaneous
  Country: HR (occurrence: HR)
  Receive Date: 20151204
  Receipt Date: 20151204
  Transmission Date: 20160305
  Serious: Yes (Other)
  Sender: FDA-Public Use
  Company Number: HR-TEVA-613154ISR

PATIENT
  Age: 54 Year
  Sex: Female
  Weight: 95 kg

DRUGS (2)
  1. NEBILET [Concomitant]
     Active Substance: NEBIVOLOL
     Route: 048
  2. RAMIPRIL. [Suspect]
     Active Substance: RAMIPRIL
     Indication: HYPERTENSION
     Dosage: FOR THE LAST ONE YEAR
     Route: 048

REACTIONS (2)
  - Blood pressure increased [Unknown]
  - Chest discomfort [Unknown]

NARRATIVE: CASE EVENT DATE: 201509
